FAERS Safety Report 11687885 (Version 2)
Quarter: 2015Q4

REPORT INFORMATION
  Report Type: Report from Study
  Country: CR (occurrence: CR)
  Receive Date: 20151030
  Receipt Date: 20151116
  Transmission Date: 20160304
  Serious: No
  Sender: FDA-Public Use
  Company Number: PHHY2015CR138715

PATIENT
  Age: 51 Year
  Sex: Female
  Weight: 69 kg

DRUGS (2)
  1. TASIGNA [Suspect]
     Active Substance: NILOTINIB
     Indication: CHRONIC MYELOID LEUKAEMIA
     Dosage: 400 MG, UNK
     Route: 065
  2. TASIGNA [Suspect]
     Active Substance: NILOTINIB
     Dosage: 2 DF (2 IN THE MORNING AND 2 IN THE EVENING), BID
     Route: 065

REACTIONS (4)
  - Fear [Unknown]
  - Frequent bowel movements [Recovering/Resolving]
  - Fatigue [Unknown]
  - Incorrect dosage administered [Unknown]
